FAERS Safety Report 4868033-9 (Version None)
Quarter: 2005Q4

REPORT INFORMATION
  Report Type: 
  Country: None (occurrence: None)
  Receive Date: 20051223
  Receipt Date: 20051223
  Transmission Date: 20060501
  Serious: No
  Sender: FDA-Public Use
  Company Number: None

PATIENT
  Sex: Male
  Weight: 88.2 kg

DRUGS (4)
  1. FLUDARABINE [Suspect]
     Indication: HODGKIN'S DISEASE
     Dosage: SEE IMAGE
     Dates: start: 20051206, end: 20051210
  2. FLUDARABINE [Suspect]
     Indication: HODGKIN'S DISEASE
     Dosage: SEE IMAGE
     Dates: start: 20051206
  3. BUSULFAN [Suspect]
     Dosage: SEE IMAGE
     Dates: start: 20051209, end: 20051210
  4. ATGAM [Suspect]
     Dosage: SEE IMAGE
     Dates: start: 20051209, end: 20051212

REACTIONS (4)
  - MUCOSAL INFLAMMATION [None]
  - PAIN [None]
  - STEM CELL TRANSPLANT [None]
  - STOMATITIS [None]
